FAERS Safety Report 23945711 (Version 1)
Quarter: 2024Q2

REPORT INFORMATION
  Report Type: Other
  Country: CA (occurrence: CA)
  Receive Date: 20240606
  Receipt Date: 20240606
  Transmission Date: 20240716
  Serious: Yes (Hospitalization, Other)
  Sender: FDA-Public Use
  Company Number: CA-BIOCON BIOLOGICS LIMITED-BBL2024003897

PATIENT

DRUGS (1)
  1. TRASTUZUMAB [Suspect]
     Active Substance: TRASTUZUMAB
     Indication: Breast cancer metastatic
     Dosage: 300 MILLIGRAM (1 EVERY 3 WEEKS)
     Route: 042

REACTIONS (3)
  - Carcinoembryonic antigen increased [Unknown]
  - Blood test abnormal [Unknown]
  - Urinary tract infection [Unknown]
